FAERS Safety Report 6712681-8 (Version None)
Quarter: 2010Q2

REPORT INFORMATION
  Report Type: 
  Country: None (occurrence: None)
  Receive Date: 20100505
  Receipt Date: 20100505
  Transmission Date: 20101027
  Serious: No
  Sender: FDA-Public Use
  Company Number: None

PATIENT
  Age: 72 Year
  Sex: Female
  Weight: 104.3273 kg

DRUGS (2)
  1. FLOVENT HFA [Suspect]
     Indication: INFLAMMATION
     Dosage: 1 PUFF TWICE A DAY ORAL INHALE
     Route: 055
     Dates: start: 20091213, end: 20091227
  2. FLOVENT HFA [Suspect]
     Indication: LUNG DISORDER
     Dosage: 1 PUFF TWICE A DAY ORAL INHALE
     Route: 055
     Dates: start: 20091213, end: 20091227

REACTIONS (2)
  - MIDDLE INSOMNIA [None]
  - MUSCLE SPASMS [None]
